FAERS Safety Report 8813816 (Version 2)
Quarter: 2013Q1

REPORT INFORMATION
  Report Type: Spontaneous
  Country: US (occurrence: US)
  Receive Date: 20120928
  Receipt Date: 20130207
  Transmission Date: 20140127
  Serious: No
  Sender: FDA-Public Use
  Company Number: US-BIOGENIDEC-2012BI039936

PATIENT
  Age: 31 None
  Sex: Female

DRUGS (1)
  1. TYSABRI [Suspect]
     Indication: MULTIPLE SCLEROSIS
     Route: 042
     Dates: start: 20120609

REACTIONS (5)
  - Depression [Not Recovered/Not Resolved]
  - Anger [Recovered/Resolved with Sequelae]
  - Weight decreased [Unknown]
  - Increased appetite [Not Recovered/Not Resolved]
  - Hemiparesis [Not Recovered/Not Resolved]
